FAERS Safety Report 15977899 (Version 2)
Quarter: 2019Q1

REPORT INFORMATION
  Report Type: Report from Study
  Country: JP (occurrence: JP)
  Receive Date: 20190218
  Receipt Date: 20190327
  Transmission Date: 20190418
  Serious: No
  Sender: FDA-Public Use
  Company Number: JP-GILEAD-2016-0230874

PATIENT
  Age: 76 Year
  Sex: Male

DRUGS (8)
  1. ALPHAGAN P [Concomitant]
     Active Substance: BRIMONIDINE TARTRATE
     Indication: GLAUCOMA
     Dosage: 2 DF, QD
     Route: 047
     Dates: start: 20140901
  2. COSOPT [Concomitant]
     Active Substance: DORZOLAMIDE HYDROCHLORIDE\TIMOLOL MALEATE
     Indication: GLAUCOMA
     Dosage: 2 DF, QD
     Route: 047
     Dates: start: 20131021
  3. XALATAN [Concomitant]
     Active Substance: LATANOPROST
     Indication: GLAUCOMA
     Dosage: 1 DF, QD
     Route: 047
     Dates: start: 20131021
  4. FURSULTIAMINE [Concomitant]
     Active Substance: FURSULTIAMINE
     Indication: PROPHYLAXIS
     Dosage: 25 MG, TID
     Route: 048
     Dates: start: 20130401
  5. EMTRICITABINE/RILPIVIRINE/TENOFOVIR DF [Suspect]
     Active Substance: EMTRICITABINE\RILPIVIRINE\TENOFOVIR DISOPROXIL FUMARATE
     Indication: HIV INFECTION
     Dosage: 1 DF, QD
     Route: 048
     Dates: start: 20150821, end: 20170309
  6. BAYASPIRIN [Concomitant]
     Active Substance: ASPIRIN
     Indication: THROMBOSIS PROPHYLAXIS
     Dosage: 100 MG, QD
     Route: 048
     Dates: start: 20130401
  7. LIVALO [Concomitant]
     Active Substance: PITAVASTATIN CALCIUM
     Indication: HYPERLIPIDAEMIA
     Dosage: 2 MG, QD
     Route: 048
     Dates: start: 20130401
  8. EPADEL T [Concomitant]
     Indication: HYPERLIPIDAEMIA
     Dosage: 600 MG, TID
     Route: 048
     Dates: start: 20130401

REACTIONS (2)
  - Glycosylated haemoglobin increased [Not Recovered/Not Resolved]
  - Benign prostatic hyperplasia [Not Recovered/Not Resolved]

NARRATIVE: CASE EVENT DATE: 20160311
